FAERS Safety Report 17281181 (Version 1)
Quarter: 2020Q1

REPORT INFORMATION
  Report Type: Spontaneous
  Country: US (occurrence: US)
  Receive Date: 20200117
  Receipt Date: 20200117
  Transmission Date: 20200409
  Serious: No
  Sender: FDA-Public Use
  Company Number: US-AUROBINDO-AUR-APL-2018-058682

PATIENT

DRUGS (2)
  1. DEXTROAMPHET SACCHARAT, AMPHET ASPARTATE, DEXTROAMPHET SULFATE AND AMPHET SULFAT [Suspect]
     Active Substance: AMPHETAMINE ASPARTATE\AMPHETAMINE SULFATE\DEXTROAMPHETAMINE SACCHARATE\DEXTROAMPHETAMINE SULFATE
     Indication: PRODUCT USED FOR UNKNOWN INDICATION
     Dosage: UNK
     Route: 065
  2. METHAMPHETAMINE                    /00069101/ [Suspect]
     Active Substance: METHAMPHETAMINE
     Indication: PRODUCT USED FOR UNKNOWN INDICATION
     Dosage: UNK
     Route: 065

REACTIONS (12)
  - Heart rate abnormal [Unknown]
  - Feeling jittery [Unknown]
  - Product substitution issue [Unknown]
  - Drug ineffective [Unknown]
  - Panic attack [Unknown]
  - Insomnia [Unknown]
  - Palpitations [Unknown]
  - Fatigue [Unknown]
  - Dyspnoea [Unknown]
  - Frequent bowel movements [Unknown]
  - Migraine [Unknown]
  - Hyperhidrosis [Unknown]
